FAERS Safety Report 8462937-6 (Version None)
Quarter: 2012Q2

REPORT INFORMATION
  Report Type: 
  Country: None (occurrence: None)
  Receive Date: 20120625
  Receipt Date: 20120612
  Transmission Date: 20120825
  Serious: No
  Sender: FDA-Public Use
  Company Number: US-ASTRAZENECA-2010SE35262

PATIENT
  Age: 62 Year
  Sex: Female

DRUGS (19)
  1. SEROQUEL [Suspect]
     Route: 048
  2. PREDNISONE [Concomitant]
  3. XANAX [Concomitant]
  4. WELLBUTRIN [Concomitant]
  5. KLONOPIN [Concomitant]
  6. VICODIN [Concomitant]
  7. BIOTIN [Concomitant]
  8. SYMBICORT [Suspect]
     Indication: CHRONIC OBSTRUCTIVE PULMONARY DISEASE
     Dosage: 160/ 4.5 MCG TWO PUFFS, TWO TIMES A DAY
     Route: 055
  9. NEURONTIN [Concomitant]
  10. METHOCARBAMOL [Concomitant]
  11. SINGULAIR [Concomitant]
  12. MULTI-VITAMINS [Concomitant]
  13. CALCITRATE [Concomitant]
  14. ALBUTEROL NEBULISER [Concomitant]
  15. EFFEXOR [Concomitant]
  16. VITAMIN B-12 [Concomitant]
  17. SEROQUEL [Suspect]
     Indication: MAJOR DEPRESSION
     Route: 048
  18. SPIRIVA [Concomitant]
  19. TRAVATAN Z [Concomitant]

REACTIONS (8)
  - GLAUCOMA [None]
  - TENDON RUPTURE [None]
  - FALL [None]
  - PAIN [None]
  - ASTHMA [None]
  - DRUG INEFFECTIVE [None]
  - WEIGHT DECREASED [None]
  - CHRONIC OBSTRUCTIVE PULMONARY DISEASE [None]
